FAERS Safety Report 13748574 (Version 2)
Quarter: 2017Q3

REPORT INFORMATION
  Report Type: Report from Study
  Country: CA (occurrence: CA)
  Receive Date: 20170713
  Receipt Date: 20170810
  Transmission Date: 20171127
  Serious: No
  Sender: FDA-Public Use
  Company Number: PHHY2017CA082744

PATIENT
  Age: 27 Year
  Sex: Female

DRUGS (6)
  1. ILARIS [Suspect]
     Active Substance: CANAKINUMAB
     Indication: FAMILIAL MEDITERRANEAN FEVER
     Dosage: 300 MG, EVERY 4 WEEKS
     Route: 058
     Dates: start: 20170308
  2. ILARIS [Suspect]
     Active Substance: CANAKINUMAB
     Dosage: UNK
     Route: 065
     Dates: start: 20170503
  3. XOLAIR [Suspect]
     Active Substance: OMALIZUMAB
     Indication: CHRONIC SPONTANEOUS URTICARIA
     Dosage: 150 MG, (REPORTED AS  3, FREQUENCY: OTHER)
     Route: 058
     Dates: start: 20160524, end: 20161219
  4. ILARIS [Suspect]
     Active Substance: CANAKINUMAB
     Dosage: UNK
     Route: 065
     Dates: start: 20170609
  5. ILARIS [Suspect]
     Active Substance: CANAKINUMAB
     Dosage: UNK
     Route: 065
     Dates: start: 20170707
  6. ILARIS [Suspect]
     Active Substance: CANAKINUMAB
     Dosage: UNK
     Route: 065
     Dates: start: 20170804

REACTIONS (5)
  - Blood pressure decreased [Unknown]
  - Heart rate increased [Recovering/Resolving]
  - Volume blood decreased [Unknown]
  - Vasoconstriction [Unknown]
  - Product availability issue [Unknown]

NARRATIVE: CASE EVENT DATE: 20170707
